FAERS Safety Report 7655897-9 (Version None)
Quarter: 2011Q3

REPORT INFORMATION
  Report Type: 
  Country: None (occurrence: None)
  Receive Date: 20110804
  Receipt Date: 20110804
  Transmission Date: 20111222
  Serious: Yes (Life-Threatening, Hospitalization)
  Sender: FDA-Public Use
  Company Number: None

PATIENT
  Age: 64 Year
  Sex: Female
  Weight: 47.627 kg

DRUGS (1)
  1. DDAVP [Suspect]
     Indication: VON WILLEBRAND'S DISEASE
     Dosage: 15 MCG IN 50CC NS
     Route: 041
     Dates: start: 20110606, end: 20110606

REACTIONS (9)
  - SYNCOPE [None]
  - DYSURIA [None]
  - NAUSEA [None]
  - FEELING ABNORMAL [None]
  - HYPONATRAEMIA [None]
  - TREMOR [None]
  - BRAIN OEDEMA [None]
  - VOMITING [None]
  - METABOLIC ENCEPHALOPATHY [None]
